FAERS Safety Report 23370965 (Version 3)
Quarter: 2024Q1

REPORT INFORMATION
  Report Type: Spontaneous
  Country: FR (occurrence: FR)
  Receive Date: 20240105
  Receipt Date: 20240320
  Transmission Date: 20240410
  Serious: Yes (Hospitalization, Other)
  Sender: FDA-Public Use
  Company Number: FR-JNJFOC-20231239214

PATIENT
  Age: 4 Decade
  Sex: Male
  Weight: 95 kg

DRUGS (7)
  1. DIPROSONE [Suspect]
     Active Substance: BETAMETHASONE DIPROPIONATE
     Indication: Crohn^s disease
     Dosage: UNK
     Route: 065
  2. REMICADE [Suspect]
     Active Substance: INFLIXIMAB
     Indication: Crohn^s disease
     Dosage: 5 MILLIGRAM
     Route: 042
     Dates: start: 20121129
  3. REMICADE [Suspect]
     Active Substance: INFLIXIMAB
     Dosage: EVERY 4 TO 6 WEEKS
     Route: 042
     Dates: start: 2010, end: 2019
  4. PNEUMOCOCCAL VACCINE POLYVALENT NOS [Concomitant]
     Active Substance: PNEUMOCOCCAL VACCINE POLYVALENT
     Dosage: UNK
  5. ESOMEPRAZOLE MAGNESIUM [Concomitant]
     Active Substance: ESOMEPRAZOLE\ESOMEPRAZOLE MAGNESIUM\ESOMEPRAZOLE MAGNESIUM DIHYDRATE
     Dosage: UNK
  6. ACETAMINOPHEN\BELLADONNA LEAF\CAFFEINE\OPIUM [Concomitant]
     Active Substance: ACETAMINOPHEN\BELLADONNA LEAF\CAFFEINE\OPIUM
     Dosage: UNK
  7. REVAXIS [Concomitant]
     Active Substance: DIPHTHERIA AND TETANUS TOXOIDS AND POLIOVIRUS VACCINE ANTIGENS
     Dosage: UNK

REACTIONS (22)
  - Neuropathy peripheral [Not Recovered/Not Resolved]
  - Crohn^s disease [Unknown]
  - Paraesthesia [Unknown]
  - Paraesthesia [Unknown]
  - Epicondylitis [Unknown]
  - Infusion related reaction [Unknown]
  - Influenza like illness [Recovered/Resolved]
  - Eye irritation [Unknown]
  - Ocular discomfort [Unknown]
  - Wallerian degeneration [Unknown]
  - Herpes zoster [Recovered/Resolved]
  - Uveitis [Unknown]
  - Raynaud^s phenomenon [Unknown]
  - Photophobia [Unknown]
  - Asthenia [Unknown]
  - Depression [Unknown]
  - Spondylitis [Unknown]
  - Pruritus [Unknown]
  - Psoriasis [Unknown]
  - Neutropenia [Unknown]
  - Eczema [Unknown]
  - Acarodermatitis [Unknown]

NARRATIVE: CASE EVENT DATE: 20110101
